FAERS Safety Report 15096615 (Version 3)
Quarter: 2018Q3

REPORT INFORMATION
  Report Type: Report from Study
  Country: JP (occurrence: JP)
  Receive Date: 20180702
  Receipt Date: 20180730
  Transmission Date: 20181010
  Serious: Yes (Other)
  Sender: FDA-Public Use
  Company Number: JP-VIFOR (INTERNATIONAL) INC.-VIT-2018-06642

PATIENT
  Age: 50 Year
  Sex: Male
  Weight: 81.5 kg

DRUGS (15)
  1. VELPHORO [Suspect]
     Active Substance: FERRIC OXYHYDROXIDE
     Route: 048
     Dates: start: 20171120, end: 20171225
  2. EPINASTINE HYDROCHLORIDE. [Concomitant]
     Active Substance: EPINASTINE HYDROCHLORIDE
     Indication: PRURITUS
     Route: 048
     Dates: start: 20180312
  3. TAKECAB [Concomitant]
     Active Substance: VONOPRAZAN FUMURATE
     Indication: PROPHYLAXIS AGAINST GASTROINTESTINAL ULCER
     Route: 048
     Dates: start: 20171211
  4. BAYASPIRIN [Concomitant]
     Active Substance: ASPIRIN
     Indication: THROMBOSIS PROPHYLAXIS
     Route: 048
  5. TERBINAFINE HYDROCHLORIDE. [Concomitant]
     Active Substance: TERBINAFINE HYDROCHLORIDE
     Indication: TINEA INFECTION
     Route: 048
     Dates: start: 20160502
  6. VASOLAN [Concomitant]
     Active Substance: VERAPAMIL HYDROCHLORIDE
     Indication: ARRHYTHMIA
     Route: 048
  7. VELPHORO [Suspect]
     Active Substance: FERRIC OXYHYDROXIDE
     Route: 048
     Dates: start: 20171225, end: 20180205
  8. VELPHORO [Suspect]
     Active Substance: FERRIC OXYHYDROXIDE
     Route: 048
     Dates: start: 20180205, end: 20180319
  9. REGPARA [Concomitant]
     Active Substance: CINACALCET HYDROCHLORIDE
     Indication: BLOOD PARATHYROID HORMONE INCREASED
     Route: 048
     Dates: start: 20161014
  10. WARFARIN SODIUM. [Concomitant]
     Active Substance: WARFARIN SODIUM
     Indication: THROMBOSIS PROPHYLAXIS
     Route: 048
  11. VELPHORO [Suspect]
     Active Substance: FERRIC OXYHYDROXIDE
     Route: 048
     Dates: start: 20180319
  12. BIXALOMER [Concomitant]
     Active Substance: BIXALOMER
     Indication: HYPERPHOSPHATAEMIA
     Route: 048
     Dates: start: 20170703
  13. TRAZENTA [Concomitant]
     Active Substance: LINAGLIPTIN
     Indication: DIABETES MELLITUS
     Route: 048
     Dates: start: 20180409
  14. VELPHORO [Suspect]
     Active Substance: FERRIC OXYHYDROXIDE
     Indication: HYPERPHOSPHATAEMIA
     Route: 048
     Dates: start: 20170508, end: 20171120
  15. ARTIST [Concomitant]
     Active Substance: CARVEDILOL
     Indication: ATRIAL FIBRILLATION
     Route: 048

REACTIONS (1)
  - Myocardial ischaemia [Not Recovered/Not Resolved]

NARRATIVE: CASE EVENT DATE: 20180420
